FAERS Safety Report 8012916-8 (Version None)
Quarter: 2011Q4

REPORT INFORMATION
  Report Type: 
  Country: None (occurrence: None)
  Receive Date: 20111229
  Receipt Date: 20111216
  Transmission Date: 20120403
  Serious: Yes (Death, Other)
  Sender: FDA-Public Use
  Company Number: MX-SANOFI-AVENTIS-2011SA083010

PATIENT
  Age: 51 Year
  Sex: Male

DRUGS (3)
  1. LANTUS [Suspect]
     Indication: TYPE 2 DIABETES MELLITUS
     Route: 058
     Dates: start: 20040101, end: 20111011
  2. ANTIEPILEPTICS [Concomitant]
     Indication: EPILEPSY
     Dates: start: 20040101, end: 20111011
  3. CARBAMAZEPINE [Concomitant]
     Indication: DIABETIC NEUROPATHY
     Route: 048
     Dates: end: 20111011

REACTIONS (4)
  - GENERALISED OEDEMA [None]
  - HYPERGLYCAEMIA [None]
  - ASPIRATION [None]
  - HYPOGLYCAEMIA [None]
